FAERS Safety Report 23517304 (Version 1)
Quarter: 2024Q1

REPORT INFORMATION
  Report Type: Report from Study
  Country: US (occurrence: None)
  Receive Date: 20240213
  Receipt Date: 20240213
  Transmission Date: 20240410
  Serious: Yes (Other)
  Sender: FDA-Public Use
  Company Number: 2024A031901

PATIENT
  Sex: Female

DRUGS (1)
  1. LYNPARZA [Suspect]
     Active Substance: OLAPARIB
     Indication: Breast cancer female
     Route: 048
     Dates: start: 20230511

REACTIONS (4)
  - Carbohydrate antigen 19-9 increased [Unknown]
  - Palpitations [Unknown]
  - Duodenitis [Unknown]
  - Stress [Unknown]
